FAERS Safety Report 24281092 (Version 1)
Quarter: 2024Q3

REPORT INFORMATION
  Report Type: Spontaneous
  Country: ES (occurrence: ES)
  Receive Date: 20240904
  Receipt Date: 20240904
  Transmission Date: 20241017
  Serious: Yes (Life-Threatening, Hospitalization)
  Sender: ACCORD
  Company Number: ES-MLMSERVICE-20240816-PI161944-00306-1

PATIENT
  Age: 24 Year
  Sex: Male

DRUGS (1)
  1. TACROLIMUS [Suspect]
     Active Substance: TACROLIMUS
     Indication: Immunosuppressant drug therapy
     Dosage: HIGH-DOSE
     Dates: start: 202109

REACTIONS (4)
  - Candida infection [Recovering/Resolving]
  - Candida endophthalmitis [Recovering/Resolving]
  - Vitritis infective [Recovering/Resolving]
  - Systemic candida [Recovering/Resolving]

NARRATIVE: CASE EVENT DATE: 20210101
